FAERS Safety Report 4750710-1 (Version None)
Quarter: 2005Q3

REPORT INFORMATION
  Report Type: 
  Country: None (occurrence: None)
  Receive Date: 20050822
  Receipt Date: 20050810
  Transmission Date: 20060218
  Serious: Yes (Life-Threatening, Hospitalization, Other)
  Sender: FDA-Public Use
  Company Number: 2005US001068

PATIENT
  Age: 47 Year
  Sex: Female
  Weight: 99.9 kg

DRUGS (18)
  1. PROGRAF [Suspect]
     Indication: PROPHYLAXIS AGAINST TRANSPLANT REJECTION
     Dosage: SEE IMAGE
     Route: 048
     Dates: start: 20030505
  2. PROGRAF [Suspect]
     Indication: PROPHYLAXIS AGAINST TRANSPLANT REJECTION
     Dosage: SEE IMAGE
     Route: 048
     Dates: start: 20030606
  3. AZATHIOPRINE [Suspect]
     Indication: IMMUNOSUPPRESSION
     Dosage: 50.00 MG, UID/QID, ORAL
     Route: 048
     Dates: start: 20030605, end: 20050726
  4. PREDNISONE [Concomitant]
  5. ZOFRAN [Concomitant]
  6. VASOTEC [Concomitant]
  7. VALTREX [Concomitant]
  8. REGLAN [Concomitant]
  9. MULTIVITAMIN (VITAMINS NOS) TABLET [Concomitant]
  10. LIPITOR [Concomitant]
  11. LEXAPRO [Concomitant]
  12. FOLIC ACID [Concomitant]
  13. COMBIVENT [Concomitant]
  14. CALCIUM WITH VITAMIN D (ERGOCALCIFEROL, CALCIUM PHOSPHATE, CALCIUM SOD [Concomitant]
  15. BACTRIM DS (SULFAEMTHOXAZOLE, TRIMETHOPRIM) TABLET [Concomitant]
  16. AZITHROMYCIN [Concomitant]
  17. ACTONEL [Concomitant]
  18. PAXIL [Concomitant]

REACTIONS (6)
  - ACUTE PROMYELOCYTIC LEUKAEMIA [None]
  - DIZZINESS [None]
  - MIGRAINE [None]
  - RESPIRATORY DISTRESS [None]
  - THROMBOCYTOPENIA [None]
  - VAGINAL HAEMORRHAGE [None]
